FAERS Safety Report 22288072 (Version 1)
Quarter: 2023Q2

REPORT INFORMATION
  Report Type: Spontaneous
  Country: FR (occurrence: None)
  Receive Date: 20230505
  Receipt Date: 20230505
  Transmission Date: 20230722
  Serious: Yes (Hospitalization)
  Sender: FDA-Public Use
  Company Number: None

PATIENT
  Age: 64 Year
  Sex: Male
  Weight: 83 kg

DRUGS (4)
  1. FLUOROURACIL [Suspect]
     Active Substance: FLUOROURACIL
     Indication: Adenocarcinoma of colon
     Dosage: STRENGTH:  50 MG/ML, SOLUTION FOR INFUSION
     Dates: start: 20230405, end: 20230405
  2. OXALIPLATIN [Suspect]
     Active Substance: OXALIPLATIN
     Indication: Adenocarcinoma of colon
     Dosage: STRENGTH: 5 MG/ML CONCENTRATE FOR SOLUTION FOR INFUSION
     Dates: start: 20230405, end: 20230405
  3. BEVACIZUMAB [Suspect]
     Active Substance: BEVACIZUMAB
     Indication: Adenocarcinoma of colon
     Dosage: STRENGTH: 25 MG/ML CONCENTRATE FOR SOLUTION FOR INFUSION
     Dates: start: 20230405, end: 20230405
  4. LEVOLEUCOVORIN CALCIUM [Suspect]
     Active Substance: LEVOLEUCOVORIN CALCIUM
     Indication: Adenocarcinoma of colon
     Dosage: STRENGTH:  10 MG/ML, SOLUTION FOR INJECTION (IV)
     Dates: start: 20230405, end: 20230405

REACTIONS (6)
  - Erythema [Recovered/Resolved]
  - Infusion related reaction [Recovered/Resolved]
  - Hypertension [Recovered/Resolved]
  - Tachycardia [Recovered/Resolved]
  - Nausea [Recovered/Resolved]
  - Vomiting [Recovered/Resolved]

NARRATIVE: CASE EVENT DATE: 20230405
